FAERS Safety Report 24602936 (Version 1)
Quarter: 2024Q4

REPORT INFORMATION
  Report Type: Spontaneous
  Country: US (occurrence: None)
  Receive Date: 20241108
  Receipt Date: 20241108
  Transmission Date: 20250115
  Serious: No
  Sender: Public
  Company Number: None

PATIENT
  Age: 52 Year
  Sex: Male

DRUGS (1)
  1. COSENTYX [Suspect]
     Active Substance: SECUKINUMAB
     Indication: Ankylosing spondylitis
     Dosage: INJECTE 150MG (1 PEN) SUBCUTANEOUSLY ONCE  A WEEK FOR 5 WEEKS AS DIRECTED?
     Route: 058
     Dates: start: 202305

REACTIONS (1)
  - Nasopharyngitis [None]
